FAERS Safety Report 6633009-8 (Version None)
Quarter: 2010Q1

REPORT INFORMATION
  Report Type: 
  Country: None (occurrence: None)
  Receive Date: 20100312
  Receipt Date: 20100304
  Transmission Date: 20100710
  Serious: Yes (Other)
  Sender: FDA-Public Use
  Company Number: US-ABBOTT-10P-163-0630187-00

PATIENT
  Sex: Male
  Weight: 90.8 kg

DRUGS (5)
  1. DEPAKOTE ER [Suspect]
     Indication: CONVULSION
     Dosage: 3 IN AM 3 IN AFTERNOON AND 4 AT HS
  2. ZOLOFT [Concomitant]
     Indication: DRUG USE FOR UNKNOWN INDICATION
  3. INTUNIV [Concomitant]
     Indication: DRUG USE FOR UNKNOWN INDICATION
  4. KLONOPIN [Concomitant]
     Indication: ABNORMAL BEHAVIOUR
  5. ABILIFY [Concomitant]
     Indication: DRUG USE FOR UNKNOWN INDICATION

REACTIONS (3)
  - ANTICONVULSANT DRUG LEVEL DECREASED [None]
  - CONVULSION [None]
  - MEDICATION RESIDUE [None]
